FAERS Safety Report 6462037-0 (Version None)
Quarter: 2009Q4

REPORT INFORMATION
  Report Type: 
  Country: None (occurrence: None)
  Receive Date: 20091130
  Receipt Date: 20091113
  Transmission Date: 20100525
  Serious: Yes (Other)
  Sender: FDA-Public Use
  Company Number: PHHY2009JP48370

PATIENT

DRUGS (1)
  1. DIOVAN [Suspect]
     Route: 064

REACTIONS (7)
  - DRUG EXPOSURE DURING PREGNANCY [None]
  - ENDOTRACHEAL INTUBATION [None]
  - HYPOGLYCAEMIA [None]
  - MECHANICAL VENTILATION [None]
  - NEONATAL ASPHYXIA [None]
  - NEONATAL ASPIRATION [None]
  - RESUSCITATION [None]
